FAERS Safety Report 9738887 (Version 4)
Quarter: 2014Q1

REPORT INFORMATION
  Report Type: Spontaneous
  Country: CO (occurrence: CO)
  Receive Date: 20131209
  Receipt Date: 20140130
  Transmission Date: 20141002
  Serious: Yes (Hospitalization, Other)
  Sender: FDA-Public Use
  Company Number: CO-JNJFOC-20131201909

PATIENT
  Age: 49 Year
  Sex: Male
  Weight: 70 kg

DRUGS (4)
  1. REMICADE [Suspect]
     Indication: PSORIASIS
     Route: 042
     Dates: start: 20131203
  2. REMICADE [Suspect]
     Indication: PSORIASIS
     Route: 042
     Dates: start: 20131105
  3. PREDNISOLONE [Concomitant]
     Route: 065
  4. TRIMETHOPRIM [Concomitant]
     Route: 065

REACTIONS (11)
  - Colitis [Unknown]
  - Deep vein thrombosis [Not Recovered/Not Resolved]
  - Sepsis [Unknown]
  - Pulmonary mycosis [Unknown]
  - Hyperhidrosis [Unknown]
  - Abdominal discomfort [Unknown]
  - Depression [Unknown]
  - Pain [Not Recovered/Not Resolved]
  - Skin irritation [Not Recovered/Not Resolved]
  - Rash [Not Recovered/Not Resolved]
  - Thrombosis [Unknown]
